FAERS Safety Report 4299300-8 (Version None)
Quarter: 2004Q1

REPORT INFORMATION
  Report Type: 
  Country: None (occurrence: None)
  Receive Date: 20040217
  Receipt Date: 20040204
  Transmission Date: 20041129
  Serious: Yes (Hospitalization, Other)
  Sender: FDA-Public Use
  Company Number: USA-2002-0006867

PATIENT
  Age: 33 Year
  Sex: Female
  Weight: 87.8 kg

DRUGS (22)
  1. OXYCONTIN [Suspect]
     Indication: PAIN
     Dosage: SEE IMAGE, ORAL
     Route: 048
     Dates: start: 20000201, end: 20010424
  2. OXYCODONE HCL [Concomitant]
  3. LACTULOSE [Concomitant]
  4. ATIVAN [Concomitant]
  5. BUMEX [Concomitant]
  6. AMBIEN [Concomitant]
  7. COLACE CAPSULES (DOCUSATE SODIUM) CAPSULE [Concomitant]
  8. TOPROL-XL [Concomitant]
  9. MAALOX (ALUMINIUM HYDROXIDE GEL, MAGNESIUM HYDROXIDE) [Concomitant]
  10. TYLENOL (CAPLET) [Concomitant]
  11. OXYCODONE HCL [Concomitant]
  12. PHENERGAN [Concomitant]
  13. VISTARIL [Concomitant]
  14. XANAX [Concomitant]
  15. ORAL CONTRACEPTIVE NOS (ORAL CONTRACEPTIVE NOS) [Concomitant]
  16. ACYCLOVIR [Concomitant]
  17. PERI-COLACE (DOCUSATE SODIUM, SENNOSIDE A+B) TABLET [Concomitant]
  18. VIOXX [Concomitant]
  19. VALTREX [Concomitant]
  20. TIGAN [Concomitant]
  21. EFFEXOR XR [Concomitant]
  22. ALBUTEROL [Concomitant]

REACTIONS (50)
  - ABDOMINAL PAIN [None]
  - AGITATION [None]
  - ANXIETY [None]
  - CHEST DISCOMFORT [None]
  - CONDITION AGGRAVATED [None]
  - CONFUSIONAL STATE [None]
  - CONSTIPATION [None]
  - COORDINATION ABNORMAL [None]
  - COUGH [None]
  - DEPRESSION [None]
  - DIPLOPIA [None]
  - DISCOMFORT [None]
  - DRUG DEPENDENCE [None]
  - DRUG WITHDRAWAL SYNDROME [None]
  - DRY MOUTH [None]
  - DYSPNOEA EXERTIONAL [None]
  - DYSURIA [None]
  - EYE SWELLING [None]
  - FATIGUE [None]
  - FEELING ABNORMAL [None]
  - FIBROMYALGIA [None]
  - FORMICATION [None]
  - HERPES SIMPLEX [None]
  - HOT FLUSH [None]
  - INSOMNIA [None]
  - INTERVERTEBRAL DISC PROTRUSION [None]
  - INTERVERTEBRAL DISC SPACE NARROWING [None]
  - KERATOCONJUNCTIVITIS SICCA [None]
  - LUNG INFILTRATION [None]
  - MALAISE [None]
  - MOOD SWINGS [None]
  - MUSCLE SPASMS [None]
  - NAUSEA [None]
  - NERVOUSNESS [None]
  - NIGHT SWEATS [None]
  - OEDEMA PERIPHERAL [None]
  - PAIN [None]
  - PANIC ATTACK [None]
  - PHARYNGITIS [None]
  - PYREXIA [None]
  - SKIN DISCOLOURATION [None]
  - SOMNOLENCE [None]
  - SPINAL CORD DISORDER [None]
  - SPINAL DISORDER [None]
  - SPINAL OSTEOARTHRITIS [None]
  - TONGUE DISORDER [None]
  - URINARY HESITATION [None]
  - VISUAL DISTURBANCE [None]
  - WEIGHT INCREASED [None]
  - WHEEZING [None]
